FAERS Safety Report 6010199-1 (Version None)
Quarter: 2008Q4

REPORT INFORMATION
  Report Type: 
  Country: None (occurrence: None)
  Receive Date: 20081218
  Receipt Date: 20071105
  Transmission Date: 20090506
  Serious: No
  Sender: FDA-Public Use
  Company Number: A0691459A

PATIENT
  Sex: Female

DRUGS (1)
  1. FLONASE [Suspect]
     Dates: start: 20030101, end: 20030101

REACTIONS (1)
  - SENSATION OF FOREIGN BODY [None]
